FAERS Safety Report 9341595 (Version 1)
Quarter: 2013Q2

REPORT INFORMATION
  Report Type: Report from Study
  Country: MX (occurrence: MX)
  Receive Date: 20130611
  Receipt Date: 20130611
  Transmission Date: 20140414
  Serious: Yes (Death)
  Sender: FDA-Public Use
  Company Number: PHHY2013MX058773

PATIENT
  Age: 79 Year
  Sex: Female

DRUGS (1)
  1. CO-DIOVAN [Suspect]
     Indication: HYPERTENSION
     Dosage: 0.5 DF (160 MG VALS, 12.5 MG HYDR), DAILY
     Route: 048

REACTIONS (2)
  - Death [Fatal]
  - Wrong technique in drug usage process [Unknown]
